FAERS Safety Report 23719135 (Version 2)
Quarter: 2024Q3

REPORT INFORMATION
  Report Type: Spontaneous
  Country: CA (occurrence: CA)
  Receive Date: 20240408
  Receipt Date: 20240729
  Transmission Date: 20241016
  Serious: Yes (Life-Threatening, Other)
  Sender: DAIICHI
  Company Number: CA-AstraZeneca-2024A080796

PATIENT
  Age: 70 Year
  Sex: Female

DRUGS (1)
  1. TRASTUZUMAB DERUXTECAN [Suspect]
     Active Substance: TRASTUZUMAB DERUXTECAN
     Indication: HER2 positive breast cancer
     Dosage: 400 MG, ONCE EVERY 3 WK
     Route: 042

REACTIONS (3)
  - Metastases to liver [Unknown]
  - Off label use [Unknown]
  - Product use issue [Unknown]
